FAERS Safety Report 4357836-5 (Version None)
Quarter: 2004Q2

REPORT INFORMATION
  Report Type: 
  Country: None (occurrence: None)
  Receive Date: 20040512
  Receipt Date: 20040427
  Transmission Date: 20050107
  Serious: Yes (Hospitalization)
  Sender: FDA-Public Use
  Company Number: US-JNJFOC-20040405964

PATIENT
  Age: 73 Year
  Sex: Female
  Weight: 52.1637 kg

DRUGS (2)
  1. INFLIXIMAB (INFLIXIMAB, RECOMBINANT) LYOPHILIZED POWDER [Suspect]
     Indication: RHEUMATOID ARTHRITIS
     Route: 042
     Dates: start: 20030901, end: 20030901
  2. METHOTREXATE [Concomitant]

REACTIONS (2)
  - CHOLECYSTECTOMY [None]
  - CONFUSIONAL STATE [None]
